FAERS Safety Report 6192318-X (Version None)
Quarter: 2009Q2

REPORT INFORMATION
  Report Type: 
  Country: None (occurrence: None)
  Receive Date: 20090515
  Receipt Date: 20090507
  Transmission Date: 20091009
  Serious: Yes (Hospitalization)
  Sender: FDA-Public Use
  Company Number: DE-MERCK-0905DEU00031

PATIENT
  Age: 49 Year
  Sex: Male

DRUGS (10)
  1. ZOCOR [Suspect]
     Route: 048
     Dates: start: 20090423
  2. LEVOCABASTINE HYDROCHLORIDE [Suspect]
     Route: 048
     Dates: start: 20090423
  3. IBUPROFEN LYSINE [Suspect]
     Route: 048
     Dates: start: 20090423
  4. LOPERAMIDE HYDROCHLORIDE [Suspect]
     Route: 048
     Dates: start: 20090423
  5. LORATADINE [Suspect]
     Route: 048
     Dates: start: 20090423
  6. AMOXICILLIN [Suspect]
     Route: 048
     Dates: start: 20090423
  7. ASPIRIN [Suspect]
     Route: 048
     Dates: start: 20090423
  8. DIPYRONE [Suspect]
     Route: 048
     Dates: start: 20090423
  9. HOPS AND LEMON BALM AND VALERIAN [Suspect]
     Route: 048
     Dates: start: 20090423
  10. DETERGENT (UNSPECIFIED) [Suspect]
     Route: 048
     Dates: start: 20090423

REACTIONS (4)
  - HAEMATEMESIS [None]
  - INCORRECT ROUTE OF DRUG ADMINISTRATION [None]
  - MULTIPLE DRUG OVERDOSE [None]
  - SUICIDE ATTEMPT [None]
